FAERS Safety Report 17275219 (Version 1)
Quarter: 2020Q1

REPORT INFORMATION
  Report Type: Report from Study
  Country: None (occurrence: CA)
  Receive Date: 20200116
  Receipt Date: 20200116
  Transmission Date: 20200409
  Serious: Yes (Hospitalization)
  Sender: FDA-Public Use
  Company Number: CA-ABBVIE-20K-028-3224385-00

PATIENT
  Age: 61 Year
  Sex: Female
  Weight: 57.2 kg

DRUGS (1)
  1. HUMIRA [Suspect]
     Active Substance: ADALIMUMAB
     Indication: RHEUMATOID ARTHRITIS
     Route: 058
     Dates: start: 20150304, end: 20191227

REACTIONS (3)
  - Rheumatoid arthritis [Unknown]
  - Localised infection [Not Recovered/Not Resolved]
  - Tissue injury [Not Recovered/Not Resolved]

NARRATIVE: CASE EVENT DATE: 20191223
